FAERS Safety Report 14941607 (Version 8)
Quarter: 2019Q4

REPORT INFORMATION
  Report Type: Report from Study
  Country: US (occurrence: US)
  Receive Date: 20180526
  Receipt Date: 20191015
  Transmission Date: 20200122
  Serious: Yes (Hospitalization, Other)
  Sender: FDA-Public Use
  Company Number: PHEH2018US019626

PATIENT
  Age: 51 Year
  Sex: Female

DRUGS (1)
  1. GILENYA [Suspect]
     Active Substance: FINGOLIMOD HYDROCHLORIDE
     Indication: MULTIPLE SCLEROSIS
     Dosage: 0.5 MG, QD
     Route: 048
     Dates: start: 20180426, end: 20190912

REACTIONS (14)
  - Muscle fatigue [Unknown]
  - Contusion [Unknown]
  - Abdominal discomfort [Unknown]
  - Cognitive disorder [Unknown]
  - Sinusitis [Not Recovered/Not Resolved]
  - Hypoaesthesia [Recovering/Resolving]
  - Cough [Not Recovered/Not Resolved]
  - Migraine [Recovering/Resolving]
  - Multiple sclerosis relapse [Unknown]
  - Pneumonia [Unknown]
  - Fall [Unknown]
  - Hemiparesis [Unknown]
  - Mobility decreased [Unknown]
  - Impaired work ability [Unknown]

NARRATIVE: CASE EVENT DATE: 20180503
